FAERS Safety Report 5386478-8 (Version None)
Quarter: 2007Q3

REPORT INFORMATION
  Report Type: 
  Country: None (occurrence: None)
  Receive Date: 20070713
  Receipt Date: 20070706
  Transmission Date: 20080115
  Serious: Yes (Hospitalization)
  Sender: FDA-Public Use
  Company Number: FR-AVENTIS-200712222FR

PATIENT
  Age: 32 Year
  Sex: Female
  Weight: 51 kg

DRUGS (3)
  1. TAXOTERE [Suspect]
     Indication: BREAST CANCER
     Route: 042
     Dates: start: 20060711, end: 20060802
  2. SOLUPRED                           /00016201/ [Suspect]
     Indication: PROPHYLAXIS
     Route: 048
     Dates: start: 20060710, end: 20060712
  3. SOLUPRED                           /00016201/ [Suspect]
     Route: 048
     Dates: start: 20060801, end: 20060803

REACTIONS (7)
  - ABDOMINAL PAIN UPPER [None]
  - ASTHENIA [None]
  - DIARRHOEA [None]
  - HYPOTENSION [None]
  - PANCREATITIS [None]
  - PHARYNGITIS [None]
  - VOMITING [None]
